FAERS Safety Report 7321545-0 (Version None)
Quarter: 2011Q1

REPORT INFORMATION
  Report Type: 
  Country: None (occurrence: None)
  Receive Date: 20110228
  Receipt Date: 20100407
  Transmission Date: 20110831
  Serious: No
  Sender: FDA-Public Use
  Company Number: A0853921A

PATIENT
  Sex: Female

DRUGS (5)
  1. VALTREX [Suspect]
     Indication: GENITAL HERPES
     Dosage: 500MG PER DAY
     Route: 048
     Dates: start: 20100405
  2. DEPAKOTE [Concomitant]
  3. BUSPAR [Concomitant]
  4. LYRICA [Concomitant]
  5. LAMICTAL [Concomitant]
     Route: 048
     Dates: start: 20060101

REACTIONS (1)
  - RASH [None]
